FAERS Safety Report 18579402 (Version 1)
Quarter: 2020Q4

REPORT INFORMATION
  Report Type: Spontaneous
  Country: US (occurrence: US)
  Receive Date: 20201204
  Receipt Date: 20201204
  Transmission Date: 20210114
  Serious: Yes (Death)
  Sender: FDA-Public Use
  Company Number: US-BAYER-2020-260698

PATIENT
  Age: 72 Year
  Sex: Female

DRUGS (9)
  1. AZITHROMYCIN ANHYDROUS. [Concomitant]
     Active Substance: AZITHROMYCIN ANHYDROUS
  2. IMMUNOGLOBULIN [IMMUNOGLOBULINS NOS] [Concomitant]
     Active Substance: IMMUNE GLOBULIN NOS
     Indication: MYOCARDITIS
  3. VANCOMYCIN [Concomitant]
     Active Substance: VANCOMYCIN
  4. NOREPINEPHRINE. [Concomitant]
     Active Substance: NOREPINEPHRINE
  5. VASOPRESSIN. [Concomitant]
     Active Substance: VASOPRESSIN
  6. HEPARIN [Concomitant]
     Active Substance: HEPARIN SODIUM
     Route: 058
  7. MEROPENEM. [Concomitant]
     Active Substance: MEROPENEM
  8. CHLOROQUINE. [Suspect]
     Active Substance: CHLOROQUINE
     Indication: COVID-19
     Dosage: UNK
     Dates: start: 202003
  9. PHENYLEPHRINE [Concomitant]
     Active Substance: PHENYLEPHRINE HYDROCHLORIDE

REACTIONS (6)
  - Accelerated idioventricular rhythm [Fatal]
  - Electrocardiogram ST segment elevation [Fatal]
  - Electrocardiogram ST segment depression [Fatal]
  - Bundle branch block right [Fatal]
  - Atrioventricular block [Fatal]
  - Electrocardiogram PR prolongation [Fatal]

NARRATIVE: CASE EVENT DATE: 20200317
